FAERS Safety Report 11145216 (Version 1)
Quarter: 2015Q2

REPORT INFORMATION
  Report Type: Spontaneous
  Country: US (occurrence: US)
  Receive Date: 20150528
  Receipt Date: 20150528
  Transmission Date: 20150821
  Serious: Yes (Other)
  Sender: FDA-Public Use
  Company Number: US-SHIRE-US201504507

PATIENT
  Age: 0 Year
  Sex: Female

DRUGS (5)
  1. LIALDA [Suspect]
     Active Substance: MESALAMINE
     Indication: MATERNAL EXPOSURE DURING PREGNANCY
     Dosage: UNK, UNKNOWN
     Route: 064
  2. FERROUS SULFATE [Concomitant]
     Active Substance: FERROUS SULFATE\FERROUS SULFATE, DRIED
     Indication: EXPOSURE DURING BREAST FEEDING
  3. BACTRIM [Concomitant]
     Active Substance: SULFAMETHOXAZOLE\TRIMETHOPRIM
     Indication: EXPOSURE DURING BREAST FEEDING
     Dosage: UNK, UNKNOWN (VIA BREASTMILK)
     Route: 050
  4. LIALDA [Suspect]
     Active Substance: MESALAMINE
     Indication: EXPOSURE DURING BREAST FEEDING
     Dosage: UNK, UNKNOWN
     Route: 063
  5. FERROUS SULFATE [Concomitant]
     Active Substance: FERROUS SULFATE\FERROUS SULFATE, DRIED
     Indication: MATERNAL EXPOSURE DURING PREGNANCY
     Dosage: UNK, UNKNOWN (VIA BREASTMILK)
     Route: 050

REACTIONS (3)
  - Exposure during breast feeding [Not Recovered/Not Resolved]
  - Low birth weight baby [Unknown]
  - Foetal growth restriction [Unknown]

NARRATIVE: CASE EVENT DATE: 201412
